FAERS Safety Report 10223681 (Version 1)
Quarter: 2014Q2

REPORT INFORMATION
  Report Type: Spontaneous
  Country: ZA (occurrence: ZA)
  Receive Date: 20140609
  Receipt Date: 20140609
  Transmission Date: 20141212
  Serious: Yes (Death)
  Sender: FDA-Public Use
  Company Number: ZA-009507513-1406ZAF002655

PATIENT
  Sex: Male

DRUGS (2)
  1. CANCIDAS 50MG [Suspect]
     Indication: FUNGAL SEPSIS
     Dosage: UNK
     Dates: start: 20140529
  2. CANCIDAS 50MG [Suspect]
     Indication: BACTERIAL SEPSIS

REACTIONS (1)
  - Death [Fatal]
